FAERS Safety Report 12681129 (Version 2)
Quarter: 2017Q2

REPORT INFORMATION
  Report Type: Spontaneous
  Country: CA (occurrence: CA)
  Receive Date: 20160824
  Receipt Date: 20170613
  Transmission Date: 20170830
  Serious: Yes (Hospitalization, Other)
  Sender: FDA-Public Use
  Company Number: CA-009507513-1604CAN001502

PATIENT
  Age: 30 Year
  Sex: Female
  Weight: 70 kg

DRUGS (2)
  1. DILAUDID [Suspect]
     Active Substance: HYDROMORPHONE HYDROCHLORIDE
     Dosage: UNK
  2. KEYTRUDA [Suspect]
     Active Substance: PEMBROLIZUMAB
     Indication: OVARIAN CANCER
     Dosage: 140 MG, Q3W
     Route: 042
     Dates: start: 20150714, end: 2016

REACTIONS (9)
  - Malignant neoplasm progression [Unknown]
  - Feeling abnormal [Unknown]
  - Adverse drug reaction [Unknown]
  - Product use in unapproved indication [Unknown]
  - Fatigue [Unknown]
  - Decreased appetite [Unknown]
  - Circumstance or information capable of leading to medication error [Unknown]
  - Drain removal [Unknown]
  - Pain [Unknown]

NARRATIVE: CASE EVENT DATE: 20150714
